FAERS Safety Report 24995581 (Version 1)
Quarter: 2025Q1

REPORT INFORMATION
  Report Type: Spontaneous
  Country: US (occurrence: US)
  Receive Date: 20250221
  Receipt Date: 20250221
  Transmission Date: 20250408
  Serious: Yes (Other)
  Sender: PURDUE
  Company Number: US-PURDUE-USA-2025-0315581

PATIENT
  Age: 61 Year
  Sex: Male

DRUGS (8)
  1. ACETAMINOPHEN\HYDROCODONE BITARTRATE [Suspect]
     Active Substance: ACETAMINOPHEN\HYDROCODONE BITARTRATE
     Indication: Product used for unknown indication
     Route: 048
  2. HYDROMORPHONE [Suspect]
     Active Substance: HYDROMORPHONE
     Indication: Product used for unknown indication
     Route: 065
  3. CLONAZEPAM [Suspect]
     Active Substance: CLONAZEPAM
     Indication: Product used for unknown indication
     Route: 048
  4. KETAMINE [Suspect]
     Active Substance: KETAMINE
     Indication: Pain
     Route: 061
  5. LIDOCAINE [Suspect]
     Active Substance: LIDOCAINE
     Indication: Pain
     Route: 061
  6. AMITRIPTYLINE [Suspect]
     Active Substance: AMITRIPTYLINE
     Indication: Pain
     Route: 061
  7. DIMETHYLTRYPTAMINE [Suspect]
     Active Substance: DIMETHYLTRYPTAMINE
     Indication: Product used for unknown indication
     Route: 065
  8. SULFAMETHOXAZOLE [Suspect]
     Active Substance: SULFAMETHOXAZOLE
     Indication: Product used for unknown indication
     Route: 065

REACTIONS (7)
  - Systemic toxicity [Recovered/Resolved]
  - Toxicity to various agents [Recovered/Resolved]
  - Impaired driving ability [Recovered/Resolved]
  - Nystagmus [Recovered/Resolved]
  - Mental status changes [Recovered/Resolved]
  - Abnormal behaviour [Recovered/Resolved]
  - Agitation [Recovered/Resolved]
